FAERS Safety Report 25592873 (Version 1)
Quarter: 2025Q3

REPORT INFORMATION
  Report Type: Spontaneous
  Country: US (occurrence: US)
  Receive Date: 20250722
  Receipt Date: 20250722
  Transmission Date: 20251020
  Serious: No
  Sender: SANOFI AVENTIS
  Company Number: US-SA-2025SA204906

PATIENT
  Sex: Male
  Weight: 123.83 kg

DRUGS (1)
  1. DUPIXENT [Suspect]
     Active Substance: DUPILUMAB
     Indication: Asthma
     Route: 058

REACTIONS (4)
  - Petechiae [Unknown]
  - Condition aggravated [Unknown]
  - White blood cell count increased [Unknown]
  - Red blood cell count decreased [Unknown]
